FAERS Safety Report 7047943-0 (Version None)
Quarter: 2010Q4

REPORT INFORMATION
  Report Type: 
  Country: None (occurrence: None)
  Receive Date: 20101015
  Receipt Date: 20101004
  Transmission Date: 20110411
  Serious: Yes (Hospitalization)
  Sender: FDA-Public Use
  Company Number: US-ELI_LILLY_AND_COMPANY-US201010001119

PATIENT
  Sex: Female

DRUGS (4)
  1. HUMALOG [Suspect]
     Indication: TYPE 2 DIABETES MELLITUS
     Dosage: 20 U, 3/D
  2. JANUVIA [Concomitant]
  3. METFORMIN [Concomitant]
  4. LANTUS [Concomitant]
     Dosage: UNK, EACH EVENING

REACTIONS (5)
  - BLOOD GLUCOSE DECREASED [None]
  - BLOOD GLUCOSE INCREASED [None]
  - DEVICE OCCLUSION [None]
  - INCORRECT DOSE ADMINISTERED [None]
  - MALAISE [None]
